FAERS Safety Report 6596247-9 (Version None)
Quarter: 2010Q1

REPORT INFORMATION
  Report Type: 
  Country: None (occurrence: None)
  Receive Date: 20100223
  Receipt Date: 20100210
  Transmission Date: 20100710
  Serious: Yes (Hospitalization)
  Sender: FDA-Public Use
  Company Number: JP-ROCHE-685828

PATIENT
  Age: 28 Year
  Sex: Male

DRUGS (3)
  1. CELLCEPT [Suspect]
     Route: 048
  2. TACROLIMUS HYDRATE [Concomitant]
     Route: 065
  3. METHYLPREDNISOLONE 4MG TAB [Concomitant]
     Route: 065

REACTIONS (2)
  - ILL-DEFINED DISORDER [None]
  - POSTRENAL FAILURE [None]
